FAERS Safety Report 7682988-9 (Version None)
Quarter: 2011Q3

REPORT INFORMATION
  Report Type: 
  Country: None (occurrence: None)
  Receive Date: 20110815
  Receipt Date: 20110811
  Transmission Date: 20111222
  Serious: Yes (Hospitalization)
  Sender: FDA-Public Use
  Company Number: MX-AMGEN-MEXSP2011040904

PATIENT
  Sex: Female

DRUGS (1)
  1. CINACALCET HYDROCHLORIDE [Suspect]
     Indication: PRODUCT USED FOR UNKNOWN INDICATION
     Dosage: 30 MG, UNK
     Dates: start: 20110701, end: 20110701

REACTIONS (3)
  - INTESTINAL OBSTRUCTION [None]
  - BLOOD PARATHYROID HORMONE INCREASED [None]
  - BLOOD CALCIUM DECREASED [None]
